FAERS Safety Report 19172765 (Version 1)
Quarter: 2021Q2

REPORT INFORMATION
  Report Type: Spontaneous
  Country: US (occurrence: US)
  Receive Date: 20210422
  Receipt Date: 20210422
  Transmission Date: 20210717
  Serious: No
  Sender: FDA-Public Use
  Company Number: None

PATIENT
  Age: 49 Year
  Sex: Male
  Weight: 80.1 kg

DRUGS (6)
  1. METFORMINXR [Concomitant]
  2. TUMS [Concomitant]
     Active Substance: CALCIUM CARBONATE
  3. JARDIANCE [Suspect]
     Active Substance: EMPAGLIFLOZIN
     Indication: TYPE 2 DIABETES MELLITUS
     Dosage: ?          QUANTITY:1 TABLET(S);?
     Route: 048
  4. FOCALIN XR [Concomitant]
     Active Substance: DEXMETHYLPHENIDATE HYDROCHLORIDE
  5. MULTI?VITAMINS [Concomitant]
  6. VALSARTAN. [Concomitant]
     Active Substance: VALSARTAN

REACTIONS (4)
  - Muscle spasms [None]
  - Dehydration [None]
  - Fungal infection [None]
  - Dysuria [None]

NARRATIVE: CASE EVENT DATE: 20210419
